FAERS Safety Report 22173835 (Version 2)
Quarter: 2024Q3

REPORT INFORMATION
  Report Type: Spontaneous
  Country: BG (occurrence: BG)
  Receive Date: 20230404
  Receipt Date: 20240808
  Transmission Date: 20241016
  Serious: Yes (Death, Hospitalization, Other)
  Sender: TEVA
  Company Number: BG-TEVA-2023-BG-2871691

PATIENT
  Age: 53 Year
  Sex: Female

DRUGS (1)
  1. METFORMIN [Suspect]
     Active Substance: METFORMIN HYDROCHLORIDE
     Indication: Type 2 diabetes mellitus
     Dosage: TIME INTERVAL: 0.333 DAYS: ONE TABLET THREE TIMES A DAY
     Route: 065

REACTIONS (8)
  - Acute kidney injury [Fatal]
  - Toxicity to various agents [Fatal]
  - Vomiting [Unknown]
  - Metabolic acidosis [Fatal]
  - Circulatory collapse [Fatal]
  - Normochromic normocytic anaemia [Unknown]
  - Hyperkalaemia [Unknown]
  - Renal impairment [Unknown]
